FAERS Safety Report 23816061 (Version 1)
Quarter: 2024Q2

REPORT INFORMATION
  Report Type: Spontaneous
  Country: US (occurrence: None)
  Receive Date: 20240503
  Receipt Date: 20240503
  Transmission Date: 20240716
  Serious: Yes (Other)
  Sender: FDA-Public Use
  Company Number: None

PATIENT
  Age: 65 Year
  Sex: Male

DRUGS (1)
  1. CARVYKTI [Suspect]
     Active Substance: CILTACABTAGENE AUTOLEUCEL
     Indication: Plasma cell myeloma
     Dates: start: 20240318, end: 20240318

REACTIONS (6)
  - Neurotoxicity [None]
  - Flat affect [None]
  - Tremor [None]
  - Parkinsonism [None]
  - Gait disturbance [None]
  - Cogwheel rigidity [None]

NARRATIVE: CASE EVENT DATE: 20240318
